FAERS Safety Report 25606467 (Version 1)
Quarter: 2025Q3

REPORT INFORMATION
  Report Type: Spontaneous
  Country: CA (occurrence: CA)
  Receive Date: 20250725
  Receipt Date: 20250725
  Transmission Date: 20251021
  Serious: Yes (Other)
  Sender: CELLTRION
  Company Number: CA-PFIZER INC-202500147299

PATIENT

DRUGS (2)
  1. INFLIXIMAB [Suspect]
     Active Substance: INFLIXIMAB
     Indication: Crohn^s disease
  2. INFLIXIMAB [Suspect]
     Active Substance: INFLIXIMAB
     Route: 041

REACTIONS (4)
  - Chest pain [Unknown]
  - Gallbladder disorder [Unknown]
  - Off label use [Unknown]
  - Intentional product use issue [Unknown]
